FAERS Safety Report 8228951-0 (Version None)
Quarter: 2012Q1

REPORT INFORMATION
  Report Type: 
  Country: None (occurrence: None)
  Receive Date: 20120322
  Receipt Date: 20120315
  Transmission Date: 20120608
  Serious: Yes (Hospitalization)
  Sender: FDA-Public Use
  Company Number: IT-ABBOTT-12P-083-0914353-00

PATIENT
  Sex: Female

DRUGS (10)
  1. INVEGA [Suspect]
     Indication: AFFECTIVE DISORDER
     Route: 048
     Dates: start: 20111207, end: 20111211
  2. ANTIPSYCHOTICS [Suspect]
     Indication: AFFECTIVE DISORDER
     Route: 048
     Dates: start: 20111207, end: 20111211
  3. DEPAKENE [Suspect]
     Indication: AFFECTIVE DISORDER
     Route: 048
     Dates: start: 20111205, end: 20111205
  4. DELORAZEPAM [Suspect]
     Indication: AFFECTIVE DISORDER
     Route: 048
     Dates: start: 20111207, end: 20111213
  5. INVEGA [Suspect]
     Route: 048
     Dates: start: 20111212, end: 20111213
  6. DEPAKENE [Suspect]
     Dosage: FORM STRENGHT: 200MG
     Route: 048
     Dates: start: 20111211, end: 20111212
  7. ANTIPSYCHOTICS [Suspect]
     Route: 048
     Dates: start: 20111212
  8. DEPAKENE [Suspect]
     Dosage: FORM STRENGTH; 500MG
     Route: 048
     Dates: start: 20111206, end: 20111210
  9. LITHIUM CARBONATE [Suspect]
     Route: 048
     Dates: start: 20111206, end: 20111212
  10. LITHIUM CARBONATE [Suspect]
     Indication: AFFECTIVE DISORDER
     Dosage: DAILY: 600MG, 300MG DAYS
     Route: 048
     Dates: start: 20111205, end: 20111205

REACTIONS (4)
  - ANTIPSYCHOTIC DRUG LEVEL ABOVE THERAPEUTIC [None]
  - HYPERAMMONAEMIA [None]
  - CONFUSIONAL STATE [None]
  - DYSARTHRIA [None]
